FAERS Safety Report 23815569 (Version 1)
Quarter: 2024Q2

REPORT INFORMATION
  Report Type: Spontaneous
  Country: US (occurrence: US)
  Receive Date: 20240503
  Receipt Date: 20240503
  Transmission Date: 20240716
  Serious: Yes (Other)
  Sender: FDA-Public Use
  Company Number: US-BAYER-2024A064003

PATIENT
  Age: 77 Year
  Sex: Female

DRUGS (13)
  1. ADEMPAS [Suspect]
     Active Substance: RIOCIGUAT
     Indication: Pulmonary hypertension
     Dosage: 0.5 MG, TID
     Route: 048
     Dates: start: 20180309
  2. FAMOTIDINE [Concomitant]
     Active Substance: FAMOTIDINE
  3. LOPERAMIDE [Concomitant]
     Active Substance: LOPERAMIDE
  4. NYSTATIN [Concomitant]
     Active Substance: NYSTATIN
  5. PATADAY [Concomitant]
     Active Substance: OLOPATADINE HYDROCHLORIDE
  6. ATORVASTATIN [Concomitant]
     Active Substance: ATORVASTATIN
  7. PANTOPRAZOLE [Concomitant]
     Active Substance: PANTOPRAZOLE
  8. METFORMIN [Concomitant]
     Active Substance: METFORMIN HYDROCHLORIDE
  9. DABIGATRAN ETEXILATE [Concomitant]
     Active Substance: DABIGATRAN ETEXILATE
  10. LEVOTHYROXINE\LIOTHYRONINE [Concomitant]
     Active Substance: LEVOTHYROXINE\LIOTHYRONINE
  11. LOSARTAN [Concomitant]
     Active Substance: LOSARTAN
  12. FUROSEMIDE [Concomitant]
     Active Substance: FUROSEMIDE
  13. ASCORBIC ACID\IRON [Concomitant]
     Active Substance: ASCORBIC ACID\IRON

REACTIONS (3)
  - Fall [None]
  - Joint injury [None]
  - Head injury [None]

NARRATIVE: CASE EVENT DATE: 20240331
